FAERS Safety Report 7016277-2 (Version None)
Quarter: 2010Q3

REPORT INFORMATION
  Report Type: 
  Country: None (occurrence: None)
  Receive Date: 20100927
  Receipt Date: 20100827
  Transmission Date: 20110219
  Serious: No
  Sender: FDA-Public Use
  Company Number: US-BAYER-201032303NA

PATIENT
  Age: 42 Year
  Sex: Male

DRUGS (2)
  1. EOVIST [Suspect]
     Indication: NUCLEAR MAGNETIC RESONANCE IMAGING
     Dosage: AS USED: 10 ML
     Dates: start: 20100825, end: 20100825
  2. PROHANCE [Suspect]
     Indication: NUCLEAR MAGNETIC RESONANCE IMAGING ABDOMINAL
     Dosage: AS USED: 3  ML
     Dates: start: 20100825, end: 20100825

REACTIONS (1)
  - NAUSEA [None]
